FAERS Safety Report 21015219 (Version 1)
Quarter: 2022Q2

REPORT INFORMATION
  Report Type: Spontaneous
  Country: AU (occurrence: AU)
  Receive Date: 20220628
  Receipt Date: 20220628
  Transmission Date: 20220721
  Serious: Yes (Hospitalization, Other)
  Sender: FDA-Public Use
  Company Number: AU-ALKEM LABORATORIES LIMITED-US-ALKEM-2022-06416

PATIENT

DRUGS (1)
  1. DULOXETINE HYDROCHLORIDE [Suspect]
     Active Substance: DULOXETINE HYDROCHLORIDE
     Indication: Antidepressant therapy
     Dosage: UNK
     Route: 065

REACTIONS (6)
  - Sympathomimetic effect [Unknown]
  - Gait disturbance [Unknown]
  - Hyperhidrosis [Unknown]
  - Overdose [Unknown]
  - Tremor [Unknown]
  - Tachycardia [Unknown]
